FAERS Safety Report 8955343 (Version 2)
Quarter: 2013Q1

REPORT INFORMATION
  Report Type: Report from Study
  Country: CA (occurrence: CA)
  Receive Date: 20121207
  Receipt Date: 20130102
  Transmission Date: 20140127
  Serious: Yes (Hospitalization, Other)
  Sender: FDA-Public Use
  Company Number: CA-BRISTOL-MYERS SQUIBB COMPANY-16787988

PATIENT
  Age: 69 Year
  Sex: Female
  Weight: 66 kg

DRUGS (17)
  1. ORENCIA [Suspect]
     Indication: RHEUMATOID ARTHRITIS
     Dosage: LAST DOSE WAS GIVEN ON 22JUN2009,13-JUN-2012 ?NO OF INF 36
     Route: 042
     Dates: start: 2008
  2. HYZAAR [Concomitant]
  3. CARBOCAL D [Concomitant]
  4. ARTHROTEC [Concomitant]
  5. LIPITOR [Concomitant]
  6. NASONEX [Concomitant]
     Route: 061
  7. LACRI-LUBE [Concomitant]
  8. ACLASTA [Concomitant]
     Route: 042
  9. SYNTHROID [Concomitant]
     Route: 048
  10. PLAQUENIL [Concomitant]
  11. METROGEL [Concomitant]
     Dosage: AT BEDTIME
     Route: 061
  12. DESONIDE [Concomitant]
     Dosage: 1DF=0.05UNITS NOT SPECIFIED
     Route: 061
  13. DAPSONE [Concomitant]
     Route: 061
  14. HYDROCORTISONE [Concomitant]
     Route: 061
  15. PATANOL [Concomitant]
     Dosage: PRODUCT STRENGTH IS 0.1%
  16. TYLENOL ARTHRITIS [Concomitant]
     Dosage: 2DF=2TABS
  17. ACTONEL [Concomitant]

REACTIONS (11)
  - Arthritis bacterial [Unknown]
  - Cellulitis [Unknown]
  - Anaemia [Unknown]
  - Osteitis [Unknown]
  - Phlebitis superficial [Unknown]
  - Wound infection [Unknown]
  - Groin pain [Unknown]
  - Head injury [Unknown]
  - Myositis [Not Recovered/Not Resolved]
  - Necrotising fasciitis [Not Recovered/Not Resolved]
  - Urinary tract infection [Unknown]
